FAERS Safety Report 13072762 (Version 1)
Quarter: 2016Q4

REPORT INFORMATION
  Report Type: Spontaneous
  Country: US (occurrence: US)
  Receive Date: 20161229
  Receipt Date: 20161229
  Transmission Date: 20170207
  Serious: Yes (Other)
  Sender: FDA-Public Use
  Company Number: US-SA-2016SA098950

PATIENT
  Sex: Male

DRUGS (1)
  1. TAXOTERE [Suspect]
     Active Substance: DOCETAXEL
     Indication: NEOPLASM MALIGNANT
     Route: 065

REACTIONS (9)
  - Diarrhoea [Unknown]
  - Rash [Unknown]
  - Feeding disorder [Unknown]
  - Metastasis [Unknown]
  - Sunburn [Unknown]
  - Skin exfoliation [Unknown]
  - Pain [Unknown]
  - Pain in extremity [Unknown]
  - Adverse drug reaction [Unknown]
